FAERS Safety Report 7643159-5 (Version None)
Quarter: 2011Q3

REPORT INFORMATION
  Report Type: 
  Country: None (occurrence: None)
  Receive Date: 20110729
  Receipt Date: 20110722
  Transmission Date: 20111222
  Serious: Yes (Hospitalization, Other)
  Sender: FDA-Public Use
  Company Number: US-BIOGENIDEC-2008BI035148

PATIENT
  Sex: Male
  Weight: 109 kg

DRUGS (4)
  1. COUMADIN [Concomitant]
     Indication: ARRHYTHMIA
     Dates: start: 20081201
  2. AVONEX [Suspect]
     Route: 030
     Dates: start: 20100221
  3. STEROIDS (NOS) [Concomitant]
  4. AVONEX [Suspect]
     Indication: MULTIPLE SCLEROSIS
     Route: 030
     Dates: start: 20080301, end: 20090912

REACTIONS (7)
  - WEIGHT INCREASED [None]
  - HEART RATE DECREASED [None]
  - BLOOD COUNT ABNORMAL [None]
  - DIZZINESS [None]
  - TREMOR [None]
  - CHEST PAIN [None]
  - ARRHYTHMIA [None]
